FAERS Safety Report 4927773-3 (Version None)
Quarter: 2006Q1

REPORT INFORMATION
  Report Type: 
  Country: None (occurrence: None)
  Receive Date: 20060228
  Receipt Date: 20050817
  Transmission Date: 20060701
  Serious: Yes (Hospitalization)
  Sender: FDA-Public Use
  Company Number: US-GLAXOSMITHKLINE-A0570626A

PATIENT
  Age: 55 Year
  Sex: Female

DRUGS (1)
  1. ZIAGEN [Suspect]
     Indication: HIV INFECTION
     Dosage: 600MG PER DAY
     Route: 048
     Dates: start: 20050801, end: 20050801

REACTIONS (4)
  - ABDOMINAL PAIN [None]
  - FATIGUE [None]
  - HYPOTENSION [None]
  - MYALGIA [None]
